FAERS Safety Report 8228392-6 (Version None)
Quarter: 2012Q1

REPORT INFORMATION
  Report Type: 
  Country: None (occurrence: None)
  Receive Date: 20120322
  Receipt Date: 20110801
  Transmission Date: 20120608
  Serious: No
  Sender: FDA-Public Use
  Company Number: US-BRISTOL-MYERS SQUIBB COMPANY-15938996

PATIENT
  Age: 60 Year
  Sex: Male

DRUGS (2)
  1. ERBITUX [Suspect]
     Indication: NON-SMALL CELL LUNG CANCER
     Dosage: 25MAR,14APR,05MAY,27MAY,31MAR,01APR,TWICE BETWEEN 14APR-05MAY,TWICE AFTER 27MAY. LAST DOSE  09JUN
     Dates: start: 20110325
  2. TAXOTERE [Suspect]
     Indication: NON-SMALL CELL LUNG CANCER
     Dosage: 25MAR2011, 14APR2011, 05MAY2011 AND 27MAY2011.
     Dates: start: 20110325

REACTIONS (1)
  - MEDICATION ERROR [None]
